FAERS Safety Report 10174962 (Version 2)
Quarter: 2014Q2

REPORT INFORMATION
  Report Type: Spontaneous
  Country: PL (occurrence: PL)
  Receive Date: 20140515
  Receipt Date: 20140515
  Transmission Date: 20141212
  Serious: Yes (Other)
  Sender: FDA-Public Use
  Company Number: PHHY2012PL092515

PATIENT
  Sex: Female
  Weight: 45 kg

DRUGS (10)
  1. OMALIZUMAB [Suspect]
     Indication: ASTHMA
     Dosage: 150 MG/MONTH
     Dates: start: 2006
  2. OMALIZUMAB [Suspect]
     Dates: start: 2007
  3. FORMOTEROL [Suspect]
     Indication: ASTHMA
     Dosage: 48 UG/D
  4. BUDESONIDE [Suspect]
     Indication: ASTHMA
  5. PREDNISONE [Suspect]
     Indication: ASTHMA
     Dosage: 40 MG/D
  6. PREDNISONE [Suspect]
     Dosage: 10 MG, PER DAY
  7. SALBUTAMOL [Suspect]
     Indication: ASTHMA
  8. BUDESONIDE W/FORMOTEROL FUMARATE [Concomitant]
     Dosage: 1 DF, BID
  9. FLUTICASONE [Concomitant]
     Dosage: 1000 UG/D
  10. GLUCOCORTICOIDS [Concomitant]
     Route: 048

REACTIONS (2)
  - Abortion spontaneous [Unknown]
  - Maternal exposure during pregnancy [Unknown]
